FAERS Safety Report 6275591-9 (Version None)
Quarter: 2009Q3

REPORT INFORMATION
  Report Type: 
  Country: None (occurrence: None)
  Receive Date: 20090721
  Receipt Date: 20090710
  Transmission Date: 20100115
  Serious: Yes (Hospitalization, Other)
  Sender: FDA-Public Use
  Company Number: AT-ELI_LILLY_AND_COMPANY-AT200907001940

PATIENT
  Age: 42 Year
  Sex: Male

DRUGS (4)
  1. HUMALOG MIX 75/25 [Suspect]
     Indication: TYPE 2 DIABETES MELLITUS
     Dosage: 46 IU, DAILY (1/D)
     Dates: start: 20040101
  2. HUMALOG MIX 75/25 [Suspect]
     Dosage: UNK, UNKNOWN
  3. SIMVASTATIN [Concomitant]
     Indication: HYPERTENSION
     Dosage: 20 MG, DAILY (1/D)
  4. DIABETEX [Concomitant]
     Indication: TYPE 2 DIABETES MELLITUS
     Dosage: UNK UNK, 2/D
     Route: 048

REACTIONS (3)
  - HYPOGLYCAEMIA [None]
  - LOSS OF CONSCIOUSNESS [None]
  - MUSCLE SPASMS [None]
